FAERS Safety Report 4819065-8 (Version None)
Quarter: 2005Q4

REPORT INFORMATION
  Report Type: 
  Country: None (occurrence: None)
  Receive Date: 20051103
  Receipt Date: 20051021
  Transmission Date: 20060501
  Serious: Yes (Life-Threatening)
  Sender: FDA-Public Use
  Company Number: ES-AVENTIS-200514038EU

PATIENT
  Age: 97 Year
  Sex: Male

DRUGS (3)
  1. SEGURIL [Suspect]
     Indication: DRUG USE FOR UNKNOWN INDICATION
     Route: 048
     Dates: end: 20050111
  2. ACOVIL [Suspect]
     Indication: DRUG USE FOR UNKNOWN INDICATION
     Route: 048
     Dates: end: 20050109
  3. ALDACTACINE [Suspect]
     Indication: DRUG USE FOR UNKNOWN INDICATION
     Dosage: DOSE: 0.5 TABLET
     Route: 048
     Dates: end: 20050109

REACTIONS (1)
  - RENAL FAILURE ACUTE [None]
